FAERS Safety Report 15451385 (Version 1)
Quarter: 2018Q4

REPORT INFORMATION
  Report Type: Report from Study
  Country: CA (occurrence: CA)
  Receive Date: 20181001
  Receipt Date: 20181001
  Transmission Date: 20190204
  Serious: Yes (Other)
  Sender: FDA-Public Use
  Company Number: CA-PFIZER INC-2018391803

PATIENT
  Sex: Female

DRUGS (3)
  1. CARBOPLATIN. [Suspect]
     Active Substance: CARBOPLATIN
     Indication: CERVIX CARCINOMA
     Dosage: UNK, EVERY 3 WEEKS (GIVEN ON DAY 1 AND REPEATED EVERY 21 DAYS)
     Route: 042
  2. PACLITAXEL. [Suspect]
     Active Substance: PACLITAXEL
     Indication: CERVIX CARCINOMA
     Dosage: 175 MG/M2(155 MG/M2 IF PRIOR PELVIC IRRADIATION),EVERY 3 WEEKS (ON DAY 1 AND REPEATED EVERY 21 DAYS)
  3. BEVACIZUMAB. [Suspect]
     Active Substance: BEVACIZUMAB
     Indication: CERVIX CARCINOMA
     Dosage: 15 MG/KG, EVERY 3 WEEKS (ON DAY 1 AND REPEATED EVERY 21 DAYS, 3 CYCLES  )

REACTIONS (3)
  - Fistula [Unknown]
  - Bacteraemia [Unknown]
  - Deep vein thrombosis [Unknown]
